FAERS Safety Report 8425798-7 (Version None)
Quarter: 2012Q2

REPORT INFORMATION
  Report Type: 
  Country: None (occurrence: None)
  Receive Date: 20120611
  Receipt Date: 20120606
  Transmission Date: 20120825
  Serious: No
  Sender: FDA-Public Use
  Company Number: US-PFIZER INC-2012037211

PATIENT
  Sex: Female
  Weight: 55.782 kg

DRUGS (6)
  1. XANAX [Suspect]
     Dosage: 1 MG, A WHOLE PILL, AT BEDTIME
     Dates: start: 20120101
  2. AMOXICILLIN [Concomitant]
     Dosage: UNK
  3. CHANTIX [Suspect]
     Indication: SMOKING CESSATION THERAPY
     Dosage: 0.5 MG, 1X/DAY
     Route: 048
     Dates: start: 20120208, end: 20120501
  4. CHANTIX [Suspect]
     Dosage: 1 MG, UNK (BY DOUBLING TWO 0.5 MG PILLS)
     Route: 048
     Dates: start: 20120101, end: 20120101
  5. XANAX [Suspect]
     Dosage: 0.5 MG, A HALF TABLET, AT BEDTIME
     Dates: start: 20120201, end: 20120101
  6. MOTRIN [Concomitant]
     Indication: PAIN
     Dosage: UNK

REACTIONS (6)
  - FEELING ABNORMAL [None]
  - HUNGER [None]
  - HYPERPHAGIA [None]
  - ANXIETY [None]
  - NERVOUSNESS [None]
  - INSOMNIA [None]
